FAERS Safety Report 5147892-9 (Version None)
Quarter: 2006Q4

REPORT INFORMATION
  Report Type: 
  Country: None (occurrence: None)
  Receive Date: 20061106
  Receipt Date: 20061030
  Transmission Date: 20070319
  Serious: Yes (Life-Threatening, Hospitalization)
  Sender: FDA-Public Use
  Company Number: SPV1-2006-01412

PATIENT
  Age: 4 Year
  Sex: Male

DRUGS (1)
  1. ADDERALL 10 [Suspect]
     Indication: ATTENTION DEFICIT/HYPERACTIVITY DISORDER
     Dosage: 30 MG, 1X/DAY, QD, ORAL
     Route: 048
     Dates: start: 20020101, end: 20030101

REACTIONS (5)
  - COLITIS [None]
  - HEADACHE [None]
  - MYDRIASIS [None]
  - PRESCRIBED OVERDOSE [None]
  - TOXIC SHOCK SYNDROME [None]
